FAERS Safety Report 20134051 (Version 1)
Quarter: 2021Q4

REPORT INFORMATION
  Report Type: Spontaneous
  Country: US (occurrence: US)
  Receive Date: 20211201
  Receipt Date: 20211201
  Transmission Date: 20220303
  Serious: Yes (Other)
  Sender: FDA-Public Use
  Company Number: US-ADVANZ PHARMA-202111007804

PATIENT

DRUGS (2)
  1. LANOXIN [Suspect]
     Active Substance: DIGOXIN
     Indication: Atrial tachycardia
     Dosage: 0.125 MG, TID (FOR MANY YEARS, THREE TABLETS DAILY BY MOUTH)
     Route: 048
  2. LANOXIN [Suspect]
     Active Substance: DIGOXIN
     Indication: Mitral valve prolapse

REACTIONS (4)
  - Palpitations [Not Recovered/Not Resolved]
  - Heart rate increased [Not Recovered/Not Resolved]
  - Product solubility abnormal [Unknown]
  - Product complaint [Unknown]
